FAERS Safety Report 5663033-3 (Version None)
Quarter: 2008Q1

REPORT INFORMATION
  Report Type: 
  Country: None (occurrence: None)
  Receive Date: 20080313
  Receipt Date: 20080303
  Transmission Date: 20080703
  Serious: Yes (Other)
  Sender: FDA-Public Use
  Company Number: GB-PFIZER INC-2008020217

PATIENT
  Age: 21 Year
  Sex: Female
  Weight: 65 kg

DRUGS (4)
  1. CHANTIX [Suspect]
     Indication: SMOKING CESSATION THERAPY
     Route: 048
     Dates: start: 20071220, end: 20080120
  2. ACYCLOVIR [Concomitant]
  3. CODEINE LINCTUS [Concomitant]
     Route: 048
  4. NICOTINE [Concomitant]

REACTIONS (3)
  - ANXIETY [None]
  - FEELING ABNORMAL [None]
  - MEMORY IMPAIRMENT [None]
